FAERS Safety Report 5167078-1 (Version None)
Quarter: 2006Q4

REPORT INFORMATION
  Report Type: 
  Country: None (occurrence: None)
  Receive Date: 20061207
  Receipt Date: 20061130
  Transmission Date: 20070319
  Serious: Yes (Hospitalization)
  Sender: FDA-Public Use
  Company Number: 2006UW26866

PATIENT
  Age: 28460 Day
  Sex: Male

DRUGS (16)
  1. IRESSA [Suspect]
     Indication: PROSTATE CANCER
     Route: 048
     Dates: start: 20060308
  2. ETOPOSIDE [Suspect]
     Indication: PROSTATE CANCER
     Dosage: 100 MG X14 OF 28 DAYS
     Route: 048
     Dates: start: 20060308, end: 20061116
  3. CALCIUM [Concomitant]
     Dosage: 1 TABLET DAILY
  4. PROCRIT [Concomitant]
     Dosage: EVERY WEDNESDAY
  5. IRON [Concomitant]
  6. LUPRON [Concomitant]
     Dosage: 1 INJECTION EVERY 4 WEEKS
  7. VITAMIN CAP [Concomitant]
  8. OMEPRAZOLE [Concomitant]
     Route: 048
  9. CALCIUM CHLORIDE [Concomitant]
  10. PREDNISONE TAB [Concomitant]
  11. ZOMETA [Concomitant]
  12. OXYCODONE HCL [Concomitant]
     Dosage: 5 MG Q4H, PRN
     Route: 048
  13. ACETAMINOPHEN [Concomitant]
     Dosage: 500 MG Q4H, PRN
     Route: 048
  14. ALBUTEROL [Concomitant]
     Dosage: 2 PUFFS TID
     Route: 055
  15. LOVENOX [Concomitant]
     Route: 058
  16. SPIRIVA [Concomitant]
     Dosage: 1 INHALATION DAILY

REACTIONS (1)
  - HAEMOLYTIC ANAEMIA [None]
